FAERS Safety Report 6093463-X (Version None)
Quarter: 2009Q1

REPORT INFORMATION
  Report Type: 
  Country: None (occurrence: None)
  Receive Date: 20090223
  Receipt Date: 20090223
  Transmission Date: 20090719
  Serious: Yes (Hospitalization)
  Sender: FDA-Public Use
  Company Number: None

PATIENT
  Sex: Male
  Weight: 98.8842 kg

DRUGS (16)
  1. JANUVIA [Suspect]
     Indication: TYPE 2 DIABETES MELLITUS
     Dosage: 100 MG ONCE DAILY PO
     Route: 048
     Dates: start: 20080918, end: 20090219
  2. AMBIEN [Concomitant]
  3. ANUSOL-HC CREA -HYDROCORTISONE- [Concomitant]
  4. ASPIRIN [Concomitant]
  5. AVODART [Concomitant]
  6. CARDIZEM LA -DILTIAZEM HCL COATED BEADS- [Concomitant]
  7. GLUCOPHAGE XR [Concomitant]
  8. GLUCOTROL XL [Concomitant]
  9. LIPITOR [Concomitant]
  10. LOPERAMIDE A-D TABS -LOPERAMIDE HCL TABS- [Concomitant]
  11. MIRAPEX [Concomitant]
  12. TOPROL-XL [Concomitant]
  13. TRICOR [Concomitant]
  14. VITAMIN D -CHOLECALCIFEROL- [Concomitant]
  15. WARFARIN SO [Concomitant]
  16. . [Concomitant]

REACTIONS (7)
  - ANAEMIA [None]
  - ATRIAL FLUTTER [None]
  - COLITIS ISCHAEMIC [None]
  - CORONARY ARTERY EMBOLISM [None]
  - GUILLAIN-BARRE SYNDROME [None]
  - LOWER GASTROINTESTINAL HAEMORRHAGE [None]
  - WALKING AID USER [None]
